FAERS Safety Report 7810953-7 (Version None)
Quarter: 2011Q4

REPORT INFORMATION
  Report Type: 
  Country: None (occurrence: None)
  Receive Date: 20111013
  Receipt Date: 20111011
  Transmission Date: 20120403
  Serious: No
  Sender: FDA-Public Use
  Company Number: US-PFIZER INC-2011243866

PATIENT
  Sex: Female
  Weight: 58.957 kg

DRUGS (5)
  1. NAPROXEN [Concomitant]
     Indication: INFLAMMATION
  2. NAPROXEN [Concomitant]
     Indication: PAIN
     Dosage: UNK, AS NEEDED
  3. LYRICA [Suspect]
     Indication: NEUROPATHY PERIPHERAL
     Dosage: UNK
     Route: 048
  4. VITAMIN E [Concomitant]
     Dosage: UNK
  5. MINERAL TAB [Concomitant]
     Dosage: UNK

REACTIONS (3)
  - PAIN [None]
  - SENSATION OF HEAVINESS [None]
  - DRUG INEFFECTIVE [None]
